FAERS Safety Report 4369528-7 (Version None)
Quarter: 2004Q2

REPORT INFORMATION
  Report Type: 
  Country: None (occurrence: None)
  Receive Date: 20040527
  Receipt Date: 20040512
  Transmission Date: 20050107
  Serious: Yes (Other)
  Sender: FDA-Public Use
  Company Number: US_0405103080

PATIENT
  Age: 62 Year
  Sex: Male

DRUGS (2)
  1. GEMCITABINE HYDROCHLORIDE-IV (GEMCITABINE) [Suspect]
     Indication: ADENOCARCINOMA PANCREAS
     Dosage: 1000 MG/M2 OTHER
     Dates: start: 20011001
  2. RADIATION THERAPY [Concomitant]

REACTIONS (8)
  - ABDOMINAL PAIN [None]
  - ALOPECIA [None]
  - DIARRHOEA [None]
  - ERYTHEMA [None]
  - MOBILITY DECREASED [None]
  - MYOSITIS [None]
  - NAUSEA [None]
  - RECALL PHENOMENON [None]
